FAERS Safety Report 9826914 (Version 1)
Quarter: 2014Q1

REPORT INFORMATION
  Report Type: Spontaneous
  Country: US (occurrence: US)
  Receive Date: 20140117
  Receipt Date: 20140117
  Transmission Date: 20141002
  Serious: No
  Sender: FDA-Public Use
  Company Number: US-GLAXOSMITHKLINE-A1017041A

PATIENT
  Age: 70 Year
  Sex: Male

DRUGS (9)
  1. PROMACTA [Suspect]
     Indication: IMMUNE THROMBOCYTOPENIC PURPURA
     Dosage: 25MG PER DAY
     Route: 048
     Dates: start: 20120612
  2. TAZTIA [Concomitant]
  3. CRESTOR [Concomitant]
  4. HYDROCHLOROTHIAZIDE [Concomitant]
  5. COUMADIN [Concomitant]
  6. THIAMINE [Concomitant]
  7. MULTIVITAMIN [Concomitant]
  8. LORAZEPAM [Concomitant]
  9. DIGOXIN [Concomitant]

REACTIONS (1)
  - Deep vein thrombosis [Unknown]
